FAERS Safety Report 6976187-3 (Version None)
Quarter: 2010Q3

REPORT INFORMATION
  Report Type: 
  Country: None (occurrence: None)
  Receive Date: 20100910
  Receipt Date: 20100827
  Transmission Date: 20110219
  Serious: Yes (Hospitalization, Other)
  Sender: FDA-Public Use
  Company Number: DE-ELI_LILLY_AND_COMPANY-DE201007000830

PATIENT
  Sex: Male
  Weight: 80 kg

DRUGS (5)
  1. FORTEO [Suspect]
     Dosage: 20 UG, EACH EVENING
     Route: 058
     Dates: start: 20091117, end: 20100701
  2. BETA BLOCKING AGENTS [Concomitant]
  3. CALCIUM [Concomitant]
     Dosage: UNK, UNKNOWN
     Route: 065
  4. VITAMIN D [Concomitant]
     Dosage: UNK, UNKNOWN
     Route: 065
  5. VOLTAREN                                /SCH/ [Concomitant]
     Dosage: UNK, UNKNOWN
     Route: 065

REACTIONS (1)
  - VENTRICULAR TACHYCARDIA [None]
